FAERS Safety Report 6361514-0 (Version None)
Quarter: 2009Q3

REPORT INFORMATION
  Report Type: 
  Country: None (occurrence: None)
  Receive Date: 20090918
  Receipt Date: 20090909
  Transmission Date: 20100115
  Serious: Yes (Other)
  Sender: FDA-Public Use
  Company Number: US-JNJFOC-20090903260

PATIENT
  Sex: Female
  Weight: 52.16 kg

DRUGS (2)
  1. REMICADE [Suspect]
     Indication: CROHN'S DISEASE
     Route: 042
  2. HUMIRA [Suspect]
     Indication: CROHN'S DISEASE
     Route: 050

REACTIONS (4)
  - EPSTEIN-BARR VIRUS INFECTION [None]
  - FATIGUE [None]
  - INFECTIOUS MONONUCLEOSIS [None]
  - LYMPHOHISTIOCYTOSIS [None]
